FAERS Safety Report 22614918 (Version 1)
Quarter: 2023Q2

REPORT INFORMATION
  Report Type: Spontaneous
  Country: JP (occurrence: JP)
  Receive Date: 20230619
  Receipt Date: 20230619
  Transmission Date: 20230721
  Serious: Yes (Hospitalization)
  Sender: FDA-Public Use
  Company Number: JP-GLAXOSMITHKLINE-JP2023JPN083909

PATIENT

DRUGS (2)
  1. DAPRODUSTAT [Suspect]
     Active Substance: DAPRODUSTAT
     Dosage: 2 MG
  2. MOLIDUSTAT SODIUM [Concomitant]
     Active Substance: MOLIDUSTAT SODIUM
     Dosage: UNK

REACTIONS (2)
  - Hypoglycaemia [Unknown]
  - Hyponatraemia [Unknown]
